FAERS Safety Report 16130786 (Version 2)
Quarter: 2019Q2

REPORT INFORMATION
  Report Type: Spontaneous
  Country: IT (occurrence: IT)
  Receive Date: 20190328
  Receipt Date: 20190516
  Transmission Date: 20190711
  Serious: Yes (Hospitalization, Other)
  Sender: FDA-Public Use
  Company Number: PHHY2019IT056315

PATIENT
  Age: 39 Year
  Sex: Female

DRUGS (8)
  1. RITUXIMAB. [Suspect]
     Active Substance: RITUXIMAB
     Indication: CENTRAL NERVOUS SYSTEM VASCULITIS
     Route: 065
  2. AZATHIOPRINE. [Suspect]
     Active Substance: AZATHIOPRINE
     Indication: CENTRAL NERVOUS SYSTEM VASCULITIS
     Dosage: 150 MG, QD
     Route: 065
  3. CYCLOPHOSPHAMIDE. [Suspect]
     Active Substance: CYCLOPHOSPHAMIDE
     Dosage: UNK
     Route: 048
  4. MYCOPHENOLATE MOFETIL. [Suspect]
     Active Substance: MYCOPHENOLATE MOFETIL
     Indication: CENTRAL NERVOUS SYSTEM VASCULITIS
     Route: 065
  5. PREDNISONE. [Suspect]
     Active Substance: PREDNISONE
     Dosage: 25 MG, QD
     Route: 065
  6. CYCLOPHOSPHAMIDE. [Suspect]
     Active Substance: CYCLOPHOSPHAMIDE
     Indication: CENTRAL NERVOUS SYSTEM VASCULITIS
     Dosage: UNK
     Route: 042
  7. PREDNISONE. [Suspect]
     Active Substance: PREDNISONE
     Indication: CENTRAL NERVOUS SYSTEM VASCULITIS
     Dosage: 50 MG, QD
     Route: 065
  8. METHYLPREDNISOLONE. [Suspect]
     Active Substance: METHYLPREDNISOLONE
     Indication: CENTRAL NERVOUS SYSTEM VASCULITIS
     Dosage: 1 G, QD
     Route: 042

REACTIONS (8)
  - Condition aggravated [Recovering/Resolving]
  - Hemiparesis [Recovering/Resolving]
  - Off label use [Unknown]
  - Drug ineffective [Recovering/Resolving]
  - Product use in unapproved indication [Unknown]
  - Central nervous system vasculitis [Recovering/Resolving]
  - Confusional state [Recovering/Resolving]
  - Headache [Recovering/Resolving]
